FAERS Safety Report 5692914-X (Version None)
Quarter: 2008Q2

REPORT INFORMATION
  Report Type: 
  Country: None (occurrence: None)
  Receive Date: 20080328
  Receipt Date: 20080221
  Transmission Date: 20081010
  Serious: Yes (Other)
  Sender: FDA-Public Use
  Company Number: CTI_00949_2008

PATIENT

DRUGS (2)
  1. ZYFLO CR [Suspect]
     Indication: ASTHMA
     Dosage: (DF)
  2. ZYFLO CR [Suspect]
     Indication: URTICARIA CHRONIC
     Dosage: (DF)

REACTIONS (1)
  - LIVER FUNCTION TEST ABNORMAL [None]
